FAERS Safety Report 21331766 (Version 3)
Quarter: 2022Q3

REPORT INFORMATION
  Report Type: Report from Study
  Country: CN (occurrence: None)
  Receive Date: 20220914
  Receipt Date: 20220922
  Transmission Date: 20221027
  Serious: Yes (Hospitalization)
  Sender: FDA-Public Use
  Company Number: CN-ROCHE-2281050

PATIENT
  Age: 70 Year
  Sex: Male
  Weight: 70 kg

DRUGS (8)
  1. ATEZOLIZUMAB [Suspect]
     Active Substance: ATEZOLIZUMAB
     Indication: Transitional cell carcinoma
     Dosage: MOST RECENT DOSE ON 15/FEB/2019
     Route: 042
     Dates: start: 20180425
  2. DICLOFENAC SODIUM [Concomitant]
     Active Substance: DICLOFENAC SODIUM
     Indication: Pain in extremity
     Dosage: 1 TABLET
     Route: 048
     Dates: start: 201705
  3. JIZHI TANGJIANG [Concomitant]
     Indication: Oropharyngeal pain
     Route: 048
     Dates: start: 20190211, end: 20190213
  4. JIZHI TANGJIANG [Concomitant]
     Indication: Cough
  5. AMOXICILLIN [Concomitant]
     Active Substance: AMOXICILLIN
     Indication: Oropharyngeal pain
     Dosage: 2 TABLET
     Route: 048
     Dates: start: 20190213, end: 20190213
  6. AMOXICILLIN [Concomitant]
     Active Substance: AMOXICILLIN
     Indication: Cough
  7. COMPOUND PARACETAMOL AND AMANTADINE HYDROCHLORIDE CAPSULES (UNK INGRED [Concomitant]
     Indication: Oropharyngeal pain
     Dosage: 1 TABLET
     Route: 048
     Dates: start: 20190213, end: 20190213
  8. COMPOUND PARACETAMOL AND AMANTADINE HYDROCHLORIDE CAPSULES (UNK INGRED [Concomitant]
     Indication: Cough

REACTIONS (1)
  - Pneumonia [Recovered/Resolved]

NARRATIVE: CASE EVENT DATE: 20190308
